FAERS Safety Report 17587129 (Version 2)
Quarter: 2020Q2

REPORT INFORMATION
  Report Type: Report from Study
  Country: PT (occurrence: PT)
  Receive Date: 20200326
  Receipt Date: 20200611
  Transmission Date: 20200713
  Serious: Yes (Death, Hospitalization, Other)
  Sender: FDA-Public Use
  Company Number: PT-MYLANLABS-2020M1031812

PATIENT
  Age: 45 Year
  Sex: Male

DRUGS (5)
  1. EFAVIRENZ/EMTRICITABINE/TENOFOVIR DISOPROXIL FUMARATE [Suspect]
     Active Substance: EFAVIRENZ\EMTRICITABINE\TENOFOVIR DISOPROXIL FUMARATE
     Indication: HIV INFECTION
     Dosage: UNK
     Route: 065
     Dates: start: 2011
  2. RALTEGRAVIR. [Concomitant]
     Active Substance: RALTEGRAVIR
     Dosage: UNK
  3. ETRAVIRINE [Concomitant]
     Active Substance: ETRAVIRINE
     Dosage: UNK
  4. EMTRICITABINE/TENOFOVIR DISOPROXIL FUMARATE [Suspect]
     Active Substance: EMTRICITABINE\TENOFOVIR DISOPROXIL FUMARATE
     Indication: HIV INFECTION
     Dosage: UNK
     Route: 065
     Dates: start: 2011
  5. EMTRICITABINE W/RILPIVIRINE/TENOFOVIR DISOPRO [Suspect]
     Active Substance: EMTRICITABINE\RILPIVIRINE\TENOFOVIR DISOPROXIL FUMARATE
     Indication: HIV INFECTION
     Dosage: UNK
     Route: 065
     Dates: start: 201701, end: 2017

REACTIONS (10)
  - Cardiac failure acute [Not Recovered/Not Resolved]
  - Dyslipidaemia [Recovered/Resolved]
  - Cardiorenal syndrome [Not Recovered/Not Resolved]
  - Headache [Recovered/Resolved]
  - Renal disorder [Fatal]
  - Acute myocardial infarction [Recovered/Resolved]
  - Insomnia [Recovered/Resolved]
  - Blood creatinine abnormal [Not Recovered/Not Resolved]
  - Hepatic function abnormal [Not Recovered/Not Resolved]
  - Renal impairment [Not Recovered/Not Resolved]

NARRATIVE: CASE EVENT DATE: 2017
